FAERS Safety Report 16581979 (Version 1)
Quarter: 2019Q3

REPORT INFORMATION
  Report Type: Spontaneous
  Country: DE (occurrence: DE)
  Receive Date: 20190717
  Receipt Date: 20190717
  Transmission Date: 20191004
  Serious: Yes (Hospitalization)
  Sender: FDA-Public Use
  Company Number: DE-ACCORD-138431

PATIENT
  Age: 82 Year
  Sex: Female
  Weight: 54 kg

DRUGS (11)
  1. FUROSEMIDE. [Suspect]
     Active Substance: FUROSEMIDE
     Indication: PRODUCT USED FOR UNKNOWN INDICATION
     Dosage: 30 MG, 1-0-0, TABLETS
     Route: 048
  2. LOSARTAN. [Concomitant]
     Active Substance: LOSARTAN
     Dosage: 100 MG, 1-0-0, TABLETS
     Route: 048
  3. ACETYLSALICYLIC ACID [Concomitant]
     Active Substance: ASPIRIN
     Dosage: 100 MG, 1-0-0, TABLETS
     Route: 048
  4. BISOPROLOL [Concomitant]
     Active Substance: BISOPROLOL
     Dosage: 2.5 MG, 1-0-0, TABLETS
     Route: 048
  5. COLECALCIFEROL [Concomitant]
     Active Substance: CHOLECALCIFEROL
     Dosage: 1000 IU, 1-0-0, TABLETS
     Route: 048
  6. METAMIZOLE SODIUM [Concomitant]
     Active Substance: METAMIZOLE SODIUM
     Dosage: 500 MG, B.B., TABLETS
     Route: 048
  7. FENTANYL. [Concomitant]
     Active Substance: FENTANYL
     Dosage: 50 UG, EVERY 3 DAYS, TRANSDERMAL PATCH
     Route: 023
  8. AMLODIPINE [Concomitant]
     Active Substance: AMLODIPINE BESYLATE
     Dosage: 5 MG, 1-0-1, TABLETS
     Route: 048
  9. XIPAMIDE [Concomitant]
     Active Substance: XIPAMIDE
     Dosage: 10 MG, 1-0-0, TABLETS
     Route: 048
  10. SACCHAROMYCES BOULARDII [Concomitant]
     Active Substance: SACCHAROMYCES CEREVISIAE
     Dosage: 50 MG, 1-0-0, CAPSULES
     Route: 048
  11. SODIUM BICARBONATE. [Concomitant]
     Active Substance: SODIUM BICARBONATE
     Dosage: 1 G, 1-1-1, TABLETS
     Route: 048

REACTIONS (6)
  - Diarrhoea [Unknown]
  - Renal impairment [Unknown]
  - Dehydration [Unknown]
  - Product prescribing error [Unknown]
  - Medication error [Unknown]
  - Weight decreased [Unknown]
